FAERS Safety Report 4523920-6 (Version None)
Quarter: 2004Q4

REPORT INFORMATION
  Report Type: 
  Country: None (occurrence: None)
  Receive Date: 20041209
  Receipt Date: 20041201
  Transmission Date: 20050328
  Serious: No
  Sender: FDA-Public Use
  Company Number: 04H-163-0281854-00

PATIENT
  Age: 42 Year
  Sex: Male

DRUGS (4)
  1. LEUCOVORIN CALCIUM [Suspect]
     Indication: CHEMOTHERAPY
     Dosage: 200 MG/M2, INTRAVENOUS
  2. ERLOTINIB [Suspect]
     Indication: CHEMOTHERAPY
     Dosage: 100 MG/D, INTRAVENOUS
     Route: 042
  3. IRINOTECAN [Suspect]
     Indication: CHEMOTHERAPY
     Dosage: 150 MG/M2, INTRAVENOUS
     Route: 042
  4. FLUOROURACIL [Suspect]
     Indication: CHEMOTHERAPY
     Dosage: 320 MG/M2, ONCE, INTRAVENOUS BOLUS
     Route: 040

REACTIONS (4)
  - DIARRHOEA [None]
  - DRUG TOXICITY [None]
  - NEUTROPENIA [None]
  - RASH [None]
